FAERS Safety Report 10076433 (Version 1)
Quarter: 2014Q2

REPORT INFORMATION
  Report Type: Spontaneous
  Country: GB (occurrence: GB)
  Receive Date: 20140414
  Receipt Date: 20140414
  Transmission Date: 20141212
  Serious: Yes (Other)
  Sender: FDA-Public Use
  Company Number: GB-TEVA-472688ISR

PATIENT
  Age: 73 Year
  Sex: Female

DRUGS (1)
  1. ATENOLOL [Suspect]
     Indication: PRODUCT USED FOR UNKNOWN INDICATION
     Route: 048
     Dates: start: 2013, end: 20130909

REACTIONS (1)
  - Nightmare [Recovered/Resolved]
